FAERS Safety Report 6102863-0 (Version None)
Quarter: 2009Q1

REPORT INFORMATION
  Report Type: 
  Country: None (occurrence: None)
  Receive Date: 20090304
  Receipt Date: 20090223
  Transmission Date: 20090719
  Serious: Yes (Other)
  Sender: FDA-Public Use
  Company Number: US-JNJCH-2009005293

PATIENT
  Sex: Male

DRUGS (1)
  1. FRESHBURST LISTERINE MOUTHWASH [Suspect]
     Indication: DRUG USE FOR UNKNOWN INDICATION
     Dosage: TEXT:ONCE
     Route: 048

REACTIONS (3)
  - APPLICATION SITE BURN [None]
  - BURNING SENSATION [None]
  - LIP SWELLING [None]
